FAERS Safety Report 17882030 (Version 2)
Quarter: 2020Q2

REPORT INFORMATION
  Report Type: Spontaneous
  Country: US (occurrence: US)
  Receive Date: 20200610
  Receipt Date: 20200610
  Transmission Date: 20200714
  Serious: No
  Sender: FDA-Public Use
  Company Number: US-SEPTODONT-201905522

PATIENT
  Age: 24 Year
  Sex: Male
  Weight: 418 kg

DRUGS (2)
  1. SEPTOCAINE [Suspect]
     Active Substance: ARTICAINE HYDROCHLORIDE\EPINEPHRINE BITARTRATE
     Indication: DENTAL LOCAL ANAESTHESIA
     Dosage: ADMINISTERED DOSE: 1 CARTRIDGE
     Route: 004
     Dates: start: 20190918, end: 20190918
  2. BENZOCAINE TOPICAL GEL [Concomitant]
     Indication: DENTAL LOCAL ANAESTHESIA
     Route: 061
     Dates: start: 20190918, end: 20190918

REACTIONS (2)
  - Hypoaesthesia oral [Recovering/Resolving]
  - Ageusia [Recovering/Resolving]

NARRATIVE: CASE EVENT DATE: 20190918
